FAERS Safety Report 4746381-0 (Version None)
Quarter: 2005Q3

REPORT INFORMATION
  Report Type: 
  Country: None (occurrence: None)
  Receive Date: 20050816
  Receipt Date: 20050816
  Transmission Date: 20060218
  Serious: Yes (Life-Threatening, Hospitalization)
  Sender: FDA-Public Use
  Company Number: None

PATIENT
  Age: 52 Year
  Sex: Male
  Weight: 80.2867 kg

DRUGS (18)
  1. PEG-INTERFERON 180MCG/0.5ML ALPHA 2A [Suspect]
     Indication: HEPATITIS C
     Dosage: 180MCG EVERY 7 DAYS SUBCUTANEOUS
     Route: 058
     Dates: start: 20040722, end: 20050707
  2. RIBAVIRIN [Suspect]
     Indication: HEPATITIS C
     Dosage: 600MG BID ORAL
     Route: 048
     Dates: start: 20040722, end: 20050707
  3. MULTI-VITAMIN [Concomitant]
  4. CLONAZEPAM [Concomitant]
  5. RANITIDINE HCL [Concomitant]
  6. HYDROCODONE [Concomitant]
  7. ACETAMINOPHEN [Concomitant]
  8. ABSORBASE [Concomitant]
  9. BETAMETHASONE DIPROPIONATE [Concomitant]
  10. ALBUTEROL [Concomitant]
  11. HYDROCHLOROTHIAZIDE [Concomitant]
  12. IBUPROFEN [Concomitant]
  13. OMEPRAZOLE [Concomitant]
  14. HYDROXYZINE PAMOATE [Concomitant]
  15. LISINOPRIL [Concomitant]
  16. PROMETHAZINE HCL [Concomitant]
  17. EPOETIN ALFA [Concomitant]
  18. OLANZAPINE [Concomitant]

REACTIONS (5)
  - ANAEMIA [None]
  - ASTHENIA [None]
  - CHEST PAIN [None]
  - DRUG TOXICITY [None]
  - DYSPNOEA [None]
